FAERS Safety Report 23653673 (Version 3)
Quarter: 2024Q1

REPORT INFORMATION
  Report Type: Report from Study
  Country: US (occurrence: US)
  Receive Date: 20240320
  Receipt Date: 20240328
  Transmission Date: 20240409
  Serious: Yes (Hospitalization, Other)
  Sender: FDA-Public Use
  Company Number: US-ABBVIE-5452919

PATIENT
  Age: 51 Year
  Sex: Female
  Weight: 66 kg

DRUGS (63)
  1. VENCLEXTA [Suspect]
     Active Substance: VENETOCLAX
     Indication: Acute lymphocytic leukaemia
     Dosage: FORM STRENGTH: 100 MG?1 TAB AT THE SAME TIME EACH DAY FOR 7 DAYS, START SAME DAY AS CHEMOTHERAPY ...
     Route: 048
     Dates: start: 202310
  2. VENCLEXTA [Suspect]
     Active Substance: VENETOCLAX
     Indication: Acute lymphocytic leukaemia
     Route: 048
  3. VENCLEXTA [Suspect]
     Active Substance: VENETOCLAX
     Indication: Acute lymphocytic leukaemia
     Dosage: FORM STRENGTH: 100 MG?TAKE 1 TABLET (100 MG TOTAL) BY MOUTH DAILY TAKE ON DAYS THROUGH 7 OF CYCLE
     Route: 048
  4. VENCLEXTA [Suspect]
     Active Substance: VENETOCLAX
     Indication: Acute lymphocytic leukaemia
     Dosage: TAKE 1 TABLET (100 MG TOTAL) BY  MOUTH DAILY TAKE ON DAYS THROUGH 7 OF CYCLE
     Route: 048
  5. VENCLEXTA [Suspect]
     Active Substance: VENETOCLAX
     Indication: Acute lymphocytic leukaemia
     Dosage: FORM STRENGTH: 800 MG
     Route: 048
  6. HUMALOG [Concomitant]
     Active Substance: INSULIN LISPRO
     Indication: Product used for unknown indication
     Dosage: 100 UNIT/ML INJECTION 0-4 UNITS
  7. VITAMIN B12 [Concomitant]
     Active Substance: CYANOCOBALAMIN
     Indication: Product used for unknown indication
     Dosage: TAKE 0.5 TABLETS (500 MCG TOTAL) BY MOUTH DAILY, ?FORM STRENGTH: 500 MCG
     Route: 048
  8. DAPSONE [Concomitant]
     Active Substance: DAPSONE
     Indication: Product used for unknown indication
     Dosage: TAKE 1 TABLET (100 MG TOTAL) BY MOUTH DAILY FORM STRENGTH: 100 MG
     Route: 048
  9. DEXTROSE [Concomitant]
     Active Substance: DEXTROSE\DEXTROSE MONOHYDRATE
     Indication: Product used for unknown indication
     Dosage: 10% BOLUS 250 ML
  10. EUCERIN [Concomitant]
     Active Substance: ENSULIZOLE\EUCERIN\OCTINOXATE\OCTISALATE\TITANIUM DIOXIDE\ZINC OXIDE
     Indication: Product used for unknown indication
  11. MOUTHKOTE [Concomitant]
     Indication: Dry mouth
     Dosage: APPLY 1 SPRAY (1 APPLICATION TOTAL) TO THE MOUTH OR THROAT 4 (FOUR) TIMES A DAY AS? NEEDED (DRY M...
     Route: 048
  12. XYLOCAINE [Concomitant]
     Active Substance: LIDOCAINE HYDROCHLORIDE
     Indication: Product used for unknown indication
     Dosage: 2 PERCENT SOLUTION?FORM STRENGTH: 2%
  13. ZOVIRAX [Concomitant]
     Active Substance: ACYCLOVIR
     Indication: Product used for unknown indication
     Dosage: TIME INTERVAL: 0.33333333 DAYS: TAKE 1 TABLET (400 MG TOTAL) BY MOUTH 3 (THREE) TIMES A DAY?FORM ...
     Route: 048
  14. ZOVIRAX [Concomitant]
     Active Substance: ACYCLOVIR
     Indication: Product used for unknown indication
     Dosage: 1 PO DAILY FORM STRENGTH: 400 MG
     Route: 048
  15. ZYLOPRIM [Concomitant]
     Active Substance: ALLOPURINOL
     Indication: Prophylaxis
     Dosage: TAKE 1 TABLET (300 MG TOTAL) BY MOUTH DAILY ?FORM STRENGTH: 300 MG
     Route: 048
  16. XANAX [Concomitant]
     Active Substance: ALPRAZOLAM
     Indication: Anxiety
     Dosage: TAKE 1 TABLET TWICE DAILY PRN ANXIETY?FORM STRENGTH: 1 MG
     Route: 048
  17. SARNA [Concomitant]
     Active Substance: CAMPHOR (SYNTHETIC)\MENTHOL
     Indication: Pruritus
     Dosage: 0.5-0.5 % LOTION?APPLY TOPICALLY EVERY 2 (TWO) HOURS AS NEEDED FOR ITCHING
     Route: 061
  18. ZOFRAN [Concomitant]
     Active Substance: ONDANSETRON HYDROCHLORIDE
     Indication: Nausea
     Dosage: TAKE 1 TABLET (8 MG TOTAL) BY MOUTH EVERY 8 (EIGHT) HOURS AS NEEDED FOR NAUSEA OR? VOMITING USE I...
     Route: 048
  19. ZOFRAN [Concomitant]
     Active Substance: ONDANSETRON HYDROCHLORIDE
     Indication: Nausea
     Dosage: TAKE 1 TABLET (8 MG TOTAL) BY MOUTH EVERY 8 HOURS. USE IF PROCHLORPERAZINE DOES NOT STOP NAUSEA
     Route: 048
  20. ZOFRAN [Concomitant]
     Active Substance: ONDANSETRON HYDROCHLORIDE
     Indication: Nausea
     Dosage: 1 P.O EVERY 6 HOURS (QID), FORM STRENGTH: 8 MG
     Route: 048
  21. DELTASONE [Concomitant]
     Active Substance: PREDNISONE
     Indication: Product used for unknown indication
     Dosage: TAKE 1 TABLET (10 MG) BY MOUTH DAILY?FORM STRENGTH: 10 MG
     Route: 048
  22. PEPCID [Concomitant]
     Active Substance: FAMOTIDINE
     Indication: Product used for unknown indication
     Dosage: TAKE 1 TABLET (40 MG TOTAL) BY MOUTH DAILY?FORM STRENGTH: 40 MG
     Route: 048
  23. DIFLUCAN [Concomitant]
     Active Substance: FLUCONAZOLE
     Indication: Product used for unknown indication
     Dosage: TAKE 2 TABLETS (400 MG TOTAL) BY MOUTH DAILY?FORM  STRENGTH: 200 MG
     Route: 048
  24. DIFLUCAN [Concomitant]
     Active Substance: FLUCONAZOLE
     Indication: Product used for unknown indication
     Dosage: FORM  STRENGTH: 200 MG
     Route: 048
  25. HYDROCORTISONE [Concomitant]
     Active Substance: HYDROCORTISONE
     Indication: Product used for unknown indication
     Dosage: TIME INTERVAL: 0.33333333 DAYS: APPLY TOPICALLY 3 (THREE) TIMES A DAY?FORM STRENGTH: 2.5%
     Route: 061
  26. HYDROCORTISONE [Concomitant]
     Active Substance: HYDROCORTISONE
     Indication: Product used for unknown indication
     Dosage: TIME INTERVAL: 0.33333333 DAYS
     Route: 061
  27. EMLA [Concomitant]
     Active Substance: LIDOCAINE\PRILOCAINE
     Indication: Product used for unknown indication
     Dosage: 2.5-2.5 % CREAM?APPLY TO PORT SITE 30-45 MINUTES PRIOR TO NEEDLE ACCESS. COVER WITH PLASTIC WRAP
  28. COMPAZINE [Concomitant]
     Active Substance: PROCHLORPERAZINE MALEATE
     Indication: Vomiting
     Dosage: 1 EVERY 6 HOURS?TAKE 1 TABLET (10 MG TOTAL) BY MOUTH EVERY 6 (SIX) HOURS AS NEEDED FOR NAUSEA OR?...
     Route: 048
  29. ZOLOFT [Concomitant]
     Active Substance: SERTRALINE HYDROCHLORIDE
     Indication: Product used for unknown indication
     Dosage: TAKE 1 TABLET (25 MG TOTAL) BY MOUTH DAILY?FORM STRENGTH: 25 MG
     Route: 048
  30. TACROLIMUS [Concomitant]
     Active Substance: TACROLIMUS
     Indication: Product used for unknown indication
     Dosage: TAKE 1 CAPSULE (1 MG TOTAL) BY MOUTH EVERY OTHER DAY?FORM STRENGTH: 1 MG
     Route: 048
  31. ABREVA [Concomitant]
     Active Substance: DOCOSANOL
     Indication: Product used for unknown indication
     Dosage: 10% CREAM
  32. PROVENTIL HFA [Concomitant]
     Active Substance: ALBUTEROL SULFATE
     Indication: Product used for unknown indication
     Dosage: 90MCG/ ACTUATION INHALER
  33. APIXABAN [Concomitant]
     Active Substance: APIXABAN
     Indication: Product used for unknown indication
     Route: 048
  34. ELIQUIS [Concomitant]
     Active Substance: APIXABAN
     Indication: Product used for unknown indication
     Route: 048
  35. PROAIR HFA [Concomitant]
     Active Substance: ALBUTEROL SULFATE
     Indication: Product used for unknown indication
     Dosage: 90MCG/ ACTUATION INHALER
  36. MAGNESIUM SULFATE [Concomitant]
     Active Substance: MAGNESIUM SULFATE\MAGNESIUM SULFATE HEPTAHYDRATE
     Indication: Product used for unknown indication
     Dosage: 6G IN SODIUAM CHLORIDE 0.9 %250ML IVPB
  37. K PHOS NEUTRAL [Concomitant]
     Active Substance: POTASSIUM PHOSPHATE, MONOBASIC\SODIUM PHOSPHATE, DIBASIC, ANHYDROUS\SODIUM PHOSPHATE, MONOBASIC, MON
     Indication: Product used for unknown indication
     Route: 048
  38. AMBIEN [Concomitant]
     Active Substance: ZOLPIDEM TARTRATE
     Indication: Product used for unknown indication
     Route: 048
  39. TESSALON [Concomitant]
     Active Substance: BENZONATATE
     Indication: Product used for unknown indication
     Route: 048
  40. POLYSPORIN [Concomitant]
     Active Substance: BACITRACIN ZINC\POLYMYXIN B SULFATE
     Indication: Product used for unknown indication
     Dosage: 500-10000 UNIT GRAM OINTMENT TUBE
  41. KLOR-CON [Concomitant]
     Active Substance: POTASSIUM CHLORIDE
     Indication: Product used for unknown indication
     Dosage: 40 MEQ ER
  42. BECLOMETHASONE [Concomitant]
     Active Substance: BECLOMETHASONE
     Indication: Product used for unknown indication
  43. TYLENOL [Concomitant]
     Active Substance: ACETAMINOPHEN
     Indication: Product used for unknown indication
     Route: 048
  44. IMODIUM [Concomitant]
     Active Substance: LOPERAMIDE HYDROCHLORIDE
     Indication: Product used for unknown indication
     Route: 048
  45. HEPARIN [Concomitant]
     Active Substance: HEPARIN SODIUM
     Indication: Product used for unknown indication
     Dosage: 1000UNIT/ML INJECTION , 2000 UNIT
  46. DIPHENHYDRAMINE HYDROCHLORIDE\LIDOCAINE HYDROCHLORIDE\NYSTATIN [Concomitant]
     Active Substance: DIPHENHYDRAMINE HYDROCHLORIDE\LIDOCAINE HYDROCHLORIDE\NYSTATIN
     Indication: Product used for unknown indication
     Route: 048
  47. PREVYMIS [Concomitant]
     Active Substance: LETERMOVIR
     Indication: Product used for unknown indication
     Route: 048
  48. MARINOL [Concomitant]
     Active Substance: DRONABINOL
     Indication: Product used for unknown indication
     Route: 048
  49. OCEAN SALINE NASAL SPRAY [Concomitant]
     Active Substance: SODIUM CHLORIDE
     Indication: Product used for unknown indication
     Dosage: NASAL SPRAY 0.65%
  50. CELLCEPT [Suspect]
     Active Substance: MYCOPHENOLATE MOFETIL
     Indication: Product used for unknown indication
     Route: 048
  51. CLARITIN [Concomitant]
     Active Substance: LORATADINE
     Indication: Product used for unknown indication
     Route: 048
  52. SODIUM CHLORIDE [Concomitant]
     Active Substance: SODIUM CHLORIDE
     Indication: Product used for unknown indication
     Dosage: 0.9% FLUSH 0.5-20ML
  53. MUCINEX DM [Concomitant]
     Active Substance: DEXTROMETHORPHAN HYDROBROMIDE\GUAIFENESIN
     Indication: Product used for unknown indication
     Dosage: 600-30MG
  54. ENTOCORT EC [Concomitant]
     Active Substance: BUDESONIDE
     Indication: Product used for unknown indication
     Route: 048
  55. REFRESH CLASSIC LUBRICANT EYE DROPS [Concomitant]
     Indication: Product used for unknown indication
     Dosage: 1.4-0.6% SOLUTIONS
     Route: 047
  56. EUCERIN [Concomitant]
     Active Substance: ENSULIZOLE\EUCERIN\OCTINOXATE\OCTISALATE\TITANIUM DIOXIDE\ZINC OXIDE
     Indication: Product used for unknown indication
     Dosage: CREAM
  57. MOUTH KOTE [Concomitant]
     Indication: Dry mouth
     Dosage: APPLY 1 SPRAY TO THE MOUTH OR THROAT 4 (FOUR) TIMES A DAY AS  NEEDED (DRY MOUTH)
  58. GLUCAGON [Concomitant]
     Active Substance: GLUCAGON\GLUCAGON HYDROCHLORIDE\WATER
     Indication: Product used for unknown indication
     Dosage: INJECTION
  59. MAXIPIME [Concomitant]
     Active Substance: CEFEPIME HYDROCHLORIDE
     Indication: Product used for unknown indication
     Dosage: 1000MG /10ML IN STERAIL WATER
  60. ADMELOG [Concomitant]
     Active Substance: INSULIN LISPRO
     Indication: Product used for unknown indication
     Dosage: 100 UNIT/ML INJECTION 0-4 UNITS
  61. VENTOLIN HFA [Concomitant]
     Active Substance: ALBUTEROL SULFATE
     Indication: Product used for unknown indication
     Dosage: 90MCG/ ACTUATION INHALER
  62. NORVASC [Concomitant]
     Active Substance: AMLODIPINE BESYLATE
     Indication: Product used for unknown indication
     Route: 048
  63. VALTREX [Concomitant]
     Active Substance: VALACYCLOVIR HYDROCHLORIDE
     Indication: Product used for unknown indication
     Route: 048

REACTIONS (23)
  - Stem cell transplant [Unknown]
  - Malnutrition [Unknown]
  - Cytomegalovirus test positive [Unknown]
  - Off label use [Unknown]
  - Platelet count decreased [Not Recovered/Not Resolved]
  - Anxiety [Unknown]
  - Constipation [Unknown]
  - Pancytopenia [Unknown]
  - Hypercholesterolaemia [Unknown]
  - Embolism [Unknown]
  - Palpitations [Unknown]
  - Dyspnoea [Unknown]
  - Nausea [Unknown]
  - Vomiting [Unknown]
  - Pseudomonal bacteraemia [Unknown]
  - Fatigue [Unknown]
  - Septic shock [Unknown]
  - Pyrexia [Unknown]
  - Escherichia bacteraemia [Unknown]
  - Rash [Unknown]
  - Neutropenia [Unknown]
  - Polyomavirus viraemia [Unknown]
  - Deep vein thrombosis [Unknown]

NARRATIVE: CASE EVENT DATE: 20231001
